FAERS Safety Report 11529541 (Version 1)
Quarter: 2015Q3

REPORT INFORMATION
  Report Type: Spontaneous
  Country: CH (occurrence: CH)
  Receive Date: 20150921
  Receipt Date: 20150921
  Transmission Date: 20151125
  Serious: Yes (Death, Other)
  Sender: FDA-Public Use
  Company Number: CH-BIOGENIDEC-2015BI124526

PATIENT
  Age: 52 Year
  Sex: Female

DRUGS (1)
  1. TYSABRI [Suspect]
     Active Substance: NATALIZUMAB
     Indication: RELAPSING-REMITTING MULTIPLE SCLEROSIS
     Route: 042
     Dates: end: 20131001

REACTIONS (3)
  - Psychotic disorder [Unknown]
  - Progressive multifocal leukoencephalopathy [Fatal]
  - Seizure [Unknown]

NARRATIVE: CASE EVENT DATE: 20131001
